FAERS Safety Report 23660254 (Version 1)
Quarter: 2024Q1

REPORT INFORMATION
  Report Type: Spontaneous
  Country: FR (occurrence: FR)
  Receive Date: 20240321
  Receipt Date: 20240321
  Transmission Date: 20240410
  Serious: Yes (Other)
  Sender: FDA-Public Use
  Company Number: None

PATIENT
  Age: 54 Year
  Sex: Female
  Weight: 68 kg

DRUGS (18)
  1. CASPOFUNGIN ACETATE [Suspect]
     Active Substance: CASPOFUNGIN ACETATE
     Indication: Lung disorder
     Dosage: UNSPECIFIED
     Route: 042
     Dates: start: 20231111
  2. LINEZOLID [Suspect]
     Active Substance: LINEZOLID
     Indication: Lung disorder
     Dosage: 1200 MILLIGRAM, QD
     Route: 042
     Dates: start: 20231111
  3. LINEZOLID [Suspect]
     Active Substance: LINEZOLID
     Dosage: UNSPECIFIED
     Route: 042
     Dates: start: 20231104, end: 20231106
  4. BACTRIM [Suspect]
     Active Substance: SULFAMETHOXAZOLE\TRIMETHOPRIM
     Indication: Lung disorder
     Dosage: UNSPECIFIED
     Route: 042
     Dates: start: 20231107
  5. PIPERACILLIN SODIUM\TAZOBACTAM SODIUM [Suspect]
     Active Substance: PIPERACILLIN SODIUM\TAZOBACTAM SODIUM
     Indication: Lung disorder
     Dosage: UNSPECIFIED
     Route: 042
     Dates: start: 20231030, end: 20231105
  6. MEROPENEM [Suspect]
     Active Substance: MEROPENEM
     Indication: Lung disorder
     Dosage: 6 GRAM, QD
     Route: 042
     Dates: start: 20231111
  7. AMIKACIN [Suspect]
     Active Substance: AMIKACIN
     Indication: Lung disorder
     Dosage: UNSPECIFIED
     Route: 042
     Dates: start: 20231111
  8. CEFTRIAXONE SODIUM [Suspect]
     Active Substance: CEFTRIAXONE SODIUM
     Indication: Lung disorder
     Dosage: UNSPECIFIED
     Route: 042
     Dates: start: 20231023, end: 20231030
  9. SPIRAMYCIN [Suspect]
     Active Substance: SPIRAMYCIN
     Indication: Lung disorder
     Dosage: UNSPECIFIED
     Route: 042
     Dates: start: 20231023, end: 20231025
  10. APIXABAN [Concomitant]
     Active Substance: APIXABAN
  11. ARIMIDEX [Concomitant]
     Active Substance: ANASTROZOLE
  12. SPIRIVA RESPIMAT [Concomitant]
     Active Substance: TIOTROPIUM BROMIDE
  13. IRBESARTAN [Concomitant]
     Active Substance: IRBESARTAN
  14. INNOVAIR [Concomitant]
     Active Substance: BECLOMETHASONE DIPROPIONATE\FORMOTEROL
  15. PANTOPRAZOLE [Concomitant]
     Active Substance: PANTOPRAZOLE
  16. FOLIC ACID [Concomitant]
     Active Substance: FOLIC ACID
  17. VENTOLINE ROTACAPS [Concomitant]
  18. TIOTROPIUM BROMIDE [Concomitant]
     Active Substance: TIOTROPIUM BROMIDE

REACTIONS (1)
  - Clostridium difficile colitis [Recovered/Resolved]

NARRATIVE: CASE EVENT DATE: 20231111
